FAERS Safety Report 4664316-6 (Version None)
Quarter: 2005Q2

REPORT INFORMATION
  Report Type: 
  Country: None (occurrence: None)
  Receive Date: 20050518
  Receipt Date: 20050513
  Transmission Date: 20051028
  Serious: Yes (Death)
  Sender: FDA-Public Use
  Company Number: US-BRISTOL-MYERS SQUIBB COMPANY-12969507

PATIENT
  Age: 50 Year
  Sex: Male
  Weight: 58 kg

DRUGS (1)
  1. CETUXIMAB [Suspect]
     Indication: OESOPHAGEAL CANCER METASTATIC
     Dosage: 1ST CETUXIMAB INFUSION ADMINISTERED ON 25-MAR-2005 (400 MG/M2 IV OVER 2 HOURS ON WEEK 1).
     Route: 042
     Dates: start: 20050506, end: 20050506

REACTIONS (3)
  - CARDIO-RESPIRATORY ARREST [None]
  - LOSS OF CONSCIOUSNESS [None]
  - OESOPHAGEAL HAEMORRHAGE [None]
